FAERS Safety Report 20587306 (Version 1)
Quarter: 2022Q1

REPORT INFORMATION
  Report Type: Spontaneous
  Country: US (occurrence: US)
  Receive Date: 20220314
  Receipt Date: 20220314
  Transmission Date: 20220423
  Serious: No
  Sender: FDA-Public Use
  Company Number: US-SA-SAC20220307001337

PATIENT
  Age: 8 Year
  Sex: Female
  Weight: 46.9 kg

DRUGS (3)
  1. DUPIXENT [Suspect]
     Active Substance: DUPILUMAB
     Indication: Dermatitis atopic
     Dosage: 200 MG, QOW
     Route: 058
     Dates: start: 20220223
  2. VITAMIN D NOS [Concomitant]
     Active Substance: VITAMIN D NOS
  3. AQUAPHOR [WHITE SOFT PARAFFIN] [Concomitant]

REACTIONS (2)
  - Inflammation [Unknown]
  - Pain [Unknown]

NARRATIVE: CASE EVENT DATE: 20220225
